FAERS Safety Report 14044225 (Version 1)
Quarter: 2017Q4

REPORT INFORMATION
  Report Type: Report from Study
  Country: None (occurrence: US)
  Receive Date: 20171004
  Receipt Date: 20171004
  Transmission Date: 20180321
  Serious: Yes (Hospitalization, Other)
  Sender: FDA-Public Use
  Company Number: US-ABBVIE-17K-163-2060768-00

PATIENT
  Age: 47 Year
  Sex: Female
  Weight: 88.08 kg

DRUGS (14)
  1. PERCOCET [Concomitant]
     Active Substance: ACETAMINOPHEN\OXYCODONE HYDROCHLORIDE
     Indication: PAIN
  2. FENTANYL TRANSDERMAL SYSTEM [Concomitant]
     Active Substance: FENTANYL
     Indication: PAIN
  3. FLEXERIL [Concomitant]
     Active Substance: CYCLOBENZAPRINE HYDROCHLORIDE
     Indication: MUSCLE SPASMS
  4. KLONOPIN [Concomitant]
     Active Substance: CLONAZEPAM
     Indication: ANXIETY
  5. BIOTIN [Concomitant]
     Active Substance: BIOTIN
     Indication: PRODUCT USED FOR UNKNOWN INDICATION
  6. HUMIRA [Suspect]
     Active Substance: ADALIMUMAB
     Indication: ANKYLOSING SPONDYLITIS
     Route: 058
     Dates: start: 2014, end: 201507
  7. VITAMIN B 12 INJECTION [Concomitant]
     Indication: PRODUCT USED FOR UNKNOWN INDICATION
  8. CLARITIN [Concomitant]
     Active Substance: LORATADINE
     Indication: SEASONAL ALLERGY
  9. CHLORTRIMETON [Concomitant]
     Active Substance: CHLORPHENIRAMINE MALEATE
     Indication: SEASONAL ALLERGY
  10. HUMIRA [Suspect]
     Active Substance: ADALIMUMAB
     Route: 058
     Dates: start: 201601
  11. PLAQUENIL [Concomitant]
     Active Substance: HYDROXYCHLOROQUINE SULFATE
     Indication: ANKYLOSING SPONDYLITIS
  12. KLONOPIN [Concomitant]
     Active Substance: CLONAZEPAM
     Indication: INSOMNIA
  13. TRAZODONE [Concomitant]
     Active Substance: TRAZODONE HYDROCHLORIDE
     Indication: ANXIETY
  14. SUPER B COMPLEX [Concomitant]
     Active Substance: CYANOCOBALAMIN\DEXPANTHENOL\NIACINAMIDE\PYRIDOXINE HYDROCHLORIDE\RIBOFLAVIN 5^-PHOSPHATE SODIUM\THIAMINE HYDROCHLORIDE\VITAMIN B COMPLEX
     Indication: PRODUCT USED FOR UNKNOWN INDICATION

REACTIONS (19)
  - White blood cell count increased [Recovered/Resolved]
  - Irritable bowel syndrome [Not Recovered/Not Resolved]
  - Infectious mononucleosis [Recovered/Resolved]
  - Weight decreased [Recovering/Resolving]
  - Pain [Recovered/Resolved]
  - Pyrexia [Recovered/Resolved]
  - Ankylosing spondylitis [Recovered/Resolved]
  - Back pain [Recovering/Resolving]
  - Lymphadenopathy [Not Recovered/Not Resolved]
  - Renal injury [Not Recovered/Not Resolved]
  - Kidney fibrosis [Not Recovered/Not Resolved]
  - Nephrolithiasis [Recovered/Resolved]
  - Rocky mountain spotted fever [Not Recovered/Not Resolved]
  - Urinary tract infection [Recovered/Resolved]
  - Ovarian cyst [Not Recovered/Not Resolved]
  - Nephrolithiasis [Recovered/Resolved]
  - Hypertension [Not Recovered/Not Resolved]
  - Fatigue [Recovered/Resolved]
  - Antinuclear antibody increased [Recovered/Resolved]

NARRATIVE: CASE EVENT DATE: 201408
